FAERS Safety Report 7735516-3 (Version None)
Quarter: 2011Q3

REPORT INFORMATION
  Report Type: 
  Country: None (occurrence: None)
  Receive Date: 20110907
  Receipt Date: 20110906
  Transmission Date: 20111222
  Serious: Yes (Congenital Anomaly)
  Sender: FDA-Public Use
  Company Number: HU-BAYER-2011-064481

PATIENT

DRUGS (1)
  1. BETASERON [Suspect]
     Dosage: UNK
     Route: 064

REACTIONS (1)
  - FOETAL MALFORMATION [None]
